FAERS Safety Report 16888802 (Version 2)
Quarter: 2019Q4

REPORT INFORMATION
  Report Type: Spontaneous
  Country: US (occurrence: US)
  Receive Date: 20191007
  Receipt Date: 20191113
  Transmission Date: 20200122
  Serious: Yes (Other)
  Sender: FDA-Public Use
  Company Number: US-CELLTRION INC.-2019US018527

PATIENT

DRUGS (9)
  1. CHROMIUM [Concomitant]
     Active Substance: CHROMIC CHLORIDE\CHROMIUM
     Dosage: UNK
  2. OLIVE OIL [Concomitant]
     Active Substance: OLIVE OIL
     Dosage: UNK
  3. GLUTAMINE [Concomitant]
     Active Substance: GLUTAMINE
     Dosage: UNK
  4. CALCIUM [Concomitant]
     Active Substance: CALCIUM
     Dosage: UNK
  5. MILK THISTLE [SILYBUM MARIANUM] [Concomitant]
     Active Substance: DIETARY SUPPLEMENT\HERBALS\MILK THISTLE
     Dosage: UNK
  6. INFLECTRA [Suspect]
     Active Substance: INFLIXIMAB-DYYB
     Indication: PSORIATIC ARTHROPATHY
     Dosage: 500 MILLIGRAM Q 8 WEEKS (CYCLIC)
     Route: 042
     Dates: start: 20190418, end: 20190613
  7. TAURINE [Concomitant]
     Active Substance: TAURINE
     Dosage: UNK
  8. CARNOSINE [Concomitant]
     Active Substance: CARNOSINE
     Dosage: UNK
  9. COLOSTRUM [Concomitant]
     Active Substance: DIETARY SUPPLEMENT
     Dosage: UNK

REACTIONS (5)
  - Syncope [Recovered/Resolved]
  - Hypotension [Recovered/Resolved]
  - Urinary incontinence [Recovered/Resolved]
  - Nausea [Recovered/Resolved]
  - Condition aggravated [Recovered/Resolved]

NARRATIVE: CASE EVENT DATE: 20190613
